FAERS Safety Report 23712863 (Version 1)
Quarter: 2024Q2

REPORT INFORMATION
  Report Type: Spontaneous
  Country: US (occurrence: None)
  Receive Date: 20240405
  Receipt Date: 20240405
  Transmission Date: 20240716
  Serious: No
  Sender: FDA-Public Use
  Company Number: None

PATIENT
  Age: 52 Year
  Sex: Male
  Weight: 67.05 kg

DRUGS (9)
  1. XDEMVY [Suspect]
     Active Substance: LOTILANER
     Indication: Demodex blepharitis
     Dosage: 1 DROP  TWICE  DAY OPHTHALMIC
     Route: 047
     Dates: start: 20240321, end: 20240322
  2. IRBESARTAN [Concomitant]
     Active Substance: IRBESARTAN
  3. DULERA [Concomitant]
     Active Substance: FORMOTEROL FUMARATE DIHYDRATE\MOMETASONE FUROATE
  4. PRAVASTATIN [Concomitant]
     Active Substance: PRAVASTATIN
  5. ALBUTEROL SULFATE [Concomitant]
     Active Substance: ALBUTEROL SULFATE
  6. ALLEGRA 12-HR [Concomitant]
  7. VITAMINS [Concomitant]
     Active Substance: VITAMINS
  8. FISH OIL [Concomitant]
     Active Substance: FISH OIL
  9. VITAMIN D [Concomitant]
     Active Substance: VITAMIN D NOS

REACTIONS (3)
  - Eye pain [None]
  - Headache [None]
  - Photosensitivity reaction [None]

NARRATIVE: CASE EVENT DATE: 20240321
